FAERS Safety Report 7113715-1 (Version None)
Quarter: 2010Q4

REPORT INFORMATION
  Report Type: 
  Country: None (occurrence: None)
  Receive Date: 20101119
  Receipt Date: 20101104
  Transmission Date: 20110411
  Serious: Yes (Other)
  Sender: FDA-Public Use
  Company Number: JP-PFIZER INC-2010149750

PATIENT
  Age: 72 Year
  Sex: Female

DRUGS (2)
  1. LIPITOR [Suspect]
     Route: 048
  2. MINODRONIC ACID [Suspect]
     Dosage: UNK
     Route: 048
     Dates: start: 20101001

REACTIONS (1)
  - ANOSMIA [None]
